FAERS Safety Report 5835820-X (Version None)
Quarter: 2008Q3

REPORT INFORMATION
  Report Type: 
  Country: None (occurrence: None)
  Receive Date: 20080730
  Receipt Date: 20080626
  Transmission Date: 20090109
  Serious: Yes (Hospitalization, Other)
  Sender: FDA-Public Use
  Company Number: 49969

PATIENT
  Age: 80 Year
  Sex: Male
  Weight: 73 kg

DRUGS (3)
  1. PACLITAXEL [Suspect]
     Indication: HEAD AND NECK CANCER
     Dosage: 334MG IV
     Route: 042
     Dates: start: 20080523
  2. PACLITAXEL [Suspect]
     Indication: LARYNGEAL CANCER
     Dosage: 334MG IV
     Route: 042
     Dates: start: 20080523
  3. PACLITAXEL [Suspect]
     Indication: OESOPHAGEAL CARCINOMA
     Dosage: 334MG IV
     Route: 042
     Dates: start: 20080523

REACTIONS (4)
  - HYPERSENSITIVITY [None]
  - HYPOTENSION [None]
  - NAUSEA [None]
  - VOMITING [None]
